FAERS Safety Report 20516717 (Version 1)
Quarter: 2022Q1

REPORT INFORMATION
  Report Type: Report from Study
  Country: JP (occurrence: JP)
  Receive Date: 20220225
  Receipt Date: 20220225
  Transmission Date: 20220423
  Serious: Yes (Death)
  Sender: FDA-Public Use
  Company Number: JP-CELGENE-JPN-20220207087

PATIENT
  Age: 85 Year
  Sex: Female

DRUGS (1)
  1. ISTODAX [Suspect]
     Active Substance: ROMIDEPSIN
     Indication: Angioimmunoblastic T-cell lymphoma
     Dosage: UNKNOWN
     Route: 041
     Dates: end: 202202

REACTIONS (1)
  - Angioimmunoblastic T-cell lymphoma [Fatal]

NARRATIVE: CASE EVENT DATE: 20220201
